FAERS Safety Report 9599630 (Version 1)
Quarter: 2013Q4

REPORT INFORMATION
  Report Type: Spontaneous
  Country: US (occurrence: US)
  Receive Date: 20131004
  Receipt Date: 20131004
  Transmission Date: 20140711
  Serious: No
  Sender: FDA-Public Use
  Company Number: US-AMGEN-USASP2013030351

PATIENT
  Age: 43 Year
  Sex: Male
  Weight: 123 kg

DRUGS (10)
  1. ENBREL [Suspect]
     Indication: PRODUCT USED FOR UNKNOWN INDICATION
     Dosage: 50 MG, QWK
     Route: 058
  2. BUPROPION [Concomitant]
     Dosage: 150 MG, SR
  3. HYDROCHLOROTHIAZIDE [Concomitant]
     Dosage: 25 MG, UNK
  4. LANSOPRAZOLE [Concomitant]
     Dosage: 30 MG, DR
  5. AMLODIPINE [Concomitant]
     Dosage: 2.5 MG, UNK
  6. DICYCLOMINE                        /00068601/ [Concomitant]
     Dosage: 10 MG, UNK
  7. TOPROL [Concomitant]
     Dosage: 50 MG, XL
  8. PRAVASTATIN [Concomitant]
     Dosage: 20 MG, UNK
  9. TRAMADOL HCL [Concomitant]
     Dosage: 50 MG, UNK
  10. ENALAPRIL [Concomitant]
     Dosage: 10 MG, UNK

REACTIONS (1)
  - Injection site irritation [Unknown]
